FAERS Safety Report 4352453-5 (Version None)
Quarter: 2004Q2

REPORT INFORMATION
  Report Type: 
  Country: None (occurrence: None)
  Receive Date: 20040409
  Receipt Date: 20040210
  Transmission Date: 20050107
  Serious: No
  Sender: FDA-Public Use
  Company Number: PHEH2004US01843

PATIENT
  Age: 6 Month
  Sex: Male

DRUGS (1)
  1. ELIDEL [Suspect]
     Indication: ECZEMA
     Dosage: QD, TOPICAL
     Route: 061
     Dates: start: 20040201

REACTIONS (1)
  - ECZEMA WEEPING [None]
